FAERS Safety Report 10960270 (Version 1)
Quarter: 2015Q1

REPORT INFORMATION
  Report Type: Spontaneous
  Country: PL (occurrence: PL)
  Receive Date: 20150327
  Receipt Date: 20150327
  Transmission Date: 20150721
  Serious: Yes (Other)
  Sender: FDA-Public Use
  Company Number: PL-JNJFOC-20150316285

PATIENT
  Age: 69 Year
  Sex: Female
  Weight: 50 kg

DRUGS (8)
  1. HYDROXYZINUM [Suspect]
     Active Substance: HYDROXYZINE HYDROCHLORIDE
     Indication: ALCOHOLIC PSYCHOSIS
     Route: 048
     Dates: start: 201411
  2. KETONAL [Suspect]
     Active Substance: KETOPROFEN
     Indication: ANALGESIC THERAPY
     Route: 048
     Dates: start: 201412, end: 201412
  3. AMIZEPIN [Suspect]
     Active Substance: CARBAMAZEPINE
     Indication: ALCOHOLIC PSYCHOSIS
     Route: 048
     Dates: start: 201411, end: 20150125
  4. PYRALGIN [Suspect]
     Active Substance: DIPYRONE
     Indication: ANALGESIC THERAPY
     Route: 048
     Dates: start: 201412, end: 201412
  5. RISPOLEPT [Suspect]
     Active Substance: RISPERIDONE
     Indication: ALCOHOLIC PSYCHOSIS
     Route: 048
     Dates: start: 201411
  6. RISPOLEPT [Suspect]
     Active Substance: RISPERIDONE
     Indication: ALCOHOL WITHDRAWAL SYNDROME
     Route: 048
     Dates: start: 201411
  7. HYDROXYZINUM [Suspect]
     Active Substance: HYDROXYZINE HYDROCHLORIDE
     Indication: ALCOHOL WITHDRAWAL SYNDROME
     Route: 048
     Dates: start: 201411
  8. AMIZEPIN [Suspect]
     Active Substance: CARBAMAZEPINE
     Indication: ALCOHOL WITHDRAWAL SYNDROME
     Route: 048
     Dates: start: 201411, end: 20150125

REACTIONS (2)
  - Dermatitis exfoliative [Recovering/Resolving]
  - Product use issue [Unknown]

NARRATIVE: CASE EVENT DATE: 201411
